FAERS Safety Report 16062417 (Version 1)
Quarter: 2019Q1

REPORT INFORMATION
  Report Type: Spontaneous
  Country: US (occurrence: US)
  Receive Date: 20190212
  Receipt Date: 20190212
  Transmission Date: 20190418
  Serious: Yes (Other)
  Sender: FDA-Public Use
  Company Number: None

PATIENT
  Age: 51 Year
  Sex: Female
  Weight: 87.54 kg

DRUGS (1)
  1. LAMOTRIGINE 200MG TAB [Suspect]
     Active Substance: LAMOTRIGINE
     Indication: EPILEPSY
     Dosage: 200 MG 3 TAB BID ORAL/PO
     Route: 048
     Dates: start: 2014

REACTIONS (2)
  - Headache [None]
  - Product substitution issue [None]
